FAERS Safety Report 24857807 (Version 2)
Quarter: 2025Q4

REPORT INFORMATION
  Report Type: Report from Study
  Country: EU (occurrence: EU)
  Receive Date: 20250117
  Receipt Date: 20251204
  Transmission Date: 20260117
  Serious: No
  Sender: SANDOZ
  Company Number: EU-SANDOZ-SDZ2025FR001544

PATIENT
  Age: 52 Year
  Sex: Male
  Weight: 74 kg

DRUGS (2)
  1. ADALIMUMAB [Suspect]
     Active Substance: ADALIMUMAB
     Dosage: 80 MG, Q2W
     Route: 058
     Dates: start: 20241015
  2. ADALIMUMAB [Suspect]
     Active Substance: ADALIMUMAB
     Indication: Colitis ulcerative
     Dosage: UNK
     Route: 058
     Dates: start: 20240112

REACTIONS (2)
  - Enteritis [Recovering/Resolving]
  - Drug ineffective [Recovering/Resolving]

NARRATIVE: CASE EVENT DATE: 20240901
